FAERS Safety Report 9850318 (Version 2)
Quarter: 2014Q1

REPORT INFORMATION
  Report Type: Report from Study
  Country: BR (occurrence: BR)
  Receive Date: 20140128
  Receipt Date: 20140128
  Transmission Date: 20141002
  Serious: Yes (Other)
  Sender: FDA-Public Use
  Company Number: PHHY2014BR003033

PATIENT
  Sex: Female
  Weight: 95 kg

DRUGS (5)
  1. GALVUS MET [Suspect]
     Indication: DIABETES MELLITUS
     Dosage: 1 DF (METF 850MG, VILD 50MG) AT NIGHT
     Route: 048
     Dates: start: 20131220
  2. GALVUS MET [Suspect]
     Dosage: 1 DF (METF 850MG, VILD 50MG) AT NIGHT
     Route: 048
  3. METFORMIN [Suspect]
     Indication: HYPERGLYCAEMIA
     Dosage: 2 DF (850MG) DAILY
     Route: 048
     Dates: start: 20131212
  4. DIAMICRON [Suspect]
     Indication: DIABETES MELLITUS
     Dosage: 1 DF (60 MG GLIC), DAILY
     Route: 048
     Dates: start: 20131220
  5. PROPRANOL HCL [Concomitant]
     Indication: BLOOD PRESSURE ABNORMAL
     Dosage: UNK UKN, UNK
     Dates: start: 2010

REACTIONS (1)
  - Foreign body sensation in eyes [Unknown]
